FAERS Safety Report 4918837-9 (Version None)
Quarter: 2006Q1

REPORT INFORMATION
  Report Type: 
  Country: None (occurrence: None)
  Receive Date: 20060216
  Receipt Date: 20060209
  Transmission Date: 20060701
  Serious: Yes (Death, Life-Threatening)
  Sender: FDA-Public Use
  Company Number: CLOF-10127

PATIENT
  Age: 75 Year
  Sex: Male
  Weight: 71.2147 kg

DRUGS (2)
  1. CLOLAR [Suspect]
     Indication: ACUTE MYELOID LEUKAEMIA
     Dosage: 40 MG QD IV
     Route: 042
     Dates: start: 20051011, end: 20051115
  2. CYTABABINE [Suspect]
     Indication: ACUTE MYELOID LEUKAEMIA
     Dosage: 180 MG
     Dates: start: 20051010, end: 20051016

REACTIONS (36)
  - ACINETOBACTER INFECTION [None]
  - ACTIVITIES OF DAILY LIVING IMPAIRED [None]
  - ASTHENIA [None]
  - ATRIAL FIBRILLATION [None]
  - BACTERIAL INFECTION [None]
  - BEDRIDDEN [None]
  - BLOOD CREATININE INCREASED [None]
  - BOWEL SOUNDS ABNORMAL [None]
  - BRADYCARDIA [None]
  - CARDIO-RESPIRATORY ARREST [None]
  - CELLULITIS [None]
  - CHROMATURIA [None]
  - CONFUSIONAL STATE [None]
  - CULTURE URINE POSITIVE [None]
  - DISORIENTATION [None]
  - DRUG TOXICITY [None]
  - ELECTROMECHANICAL DISSOCIATION [None]
  - ENTEROCOCCAL INFECTION [None]
  - FEBRILE NEUTROPENIA [None]
  - GENERAL PHYSICAL HEALTH DETERIORATION [None]
  - HYPERTENSION [None]
  - HYPOTENSION [None]
  - INCONTINENCE [None]
  - INFUSION RELATED REACTION [None]
  - JAUNDICE [None]
  - LIVER DISORDER [None]
  - MYOPATHY [None]
  - PANCYTOPENIA [None]
  - PEDAL PULSE DECREASED [None]
  - PNEUMONIA [None]
  - REFUSAL OF TREATMENT BY PATIENT [None]
  - RESPIRATORY DISTRESS [None]
  - RESPIRATORY FAILURE [None]
  - SEPSIS [None]
  - SPUTUM CULTURE POSITIVE [None]
  - VENTRICULAR TACHYCARDIA [None]
